FAERS Safety Report 26181910 (Version 1)
Quarter: 2025Q4

REPORT INFORMATION
  Report Type: Report from Study
  Country: US (occurrence: US)
  Receive Date: 20251221
  Receipt Date: 20251221
  Transmission Date: 20260118
  Serious: Yes (Other)
  Sender: ABBVIE
  Company Number: US-ABBVIE-6595823

PATIENT
  Age: 64 Year
  Sex: Female

DRUGS (2)
  1. SYNTHROID [Suspect]
     Active Substance: LEVOTHYROXINE SODIUM
     Indication: Product used for unknown indication
     Dosage: 50MCG/ TAKE 1 TABLET EVERY DAY
     Route: 048
     Dates: end: 202510
  2. SLEEP AID (DIPHENHYDRAMINE HYDROCHLORIDE) [Concomitant]
     Active Substance: DIPHENHYDRAMINE HYDROCHLORIDE
     Indication: Product used for unknown indication

REACTIONS (7)
  - Cataract [Unknown]
  - Ocular discomfort [Unknown]
  - Decreased appetite [Unknown]
  - Amnesia [Unknown]
  - Insomnia [Unknown]
  - Eye irritation [Unknown]
  - Hiatus hernia [Unknown]

NARRATIVE: CASE EVENT DATE: 20250101
